FAERS Safety Report 9720162 (Version 2)
Quarter: 2014Q3

REPORT INFORMATION
  Report Type: Report from Study
  Country: US (occurrence: US)
  Receive Date: 20131129
  Receipt Date: 20140804
  Transmission Date: 20150326
  Serious: Yes (Other)
  Sender: FDA-Public Use
  Company Number: US-ROCHE-1308143

PATIENT
  Sex: Male
  Weight: 36.6 kg

DRUGS (2)
  1. NUTROPIN [Suspect]
     Active Substance: SOMATROPIN
     Indication: GROWTH HORMONE DEFICIENCY
     Route: 058
     Dates: start: 20061005
  2. NUTROPIN [Suspect]
     Active Substance: SOMATROPIN
     Route: 058

REACTIONS (2)
  - Alopecia [Recovered/Resolved]
  - Drug dose omission [Unknown]
